FAERS Safety Report 24580134 (Version 2)
Quarter: 2025Q3

REPORT INFORMATION
  Report Type: Spontaneous
  Country: JP (occurrence: JP)
  Receive Date: 20241105
  Receipt Date: 20250809
  Transmission Date: 20251020
  Serious: Yes (Other)
  Sender: ALEXION PHARMACEUTICALS
  Company Number: JP-ASTRAZENECA-240119051_061310_P_1

PATIENT
  Age: 7 Decade
  Sex: Female

DRUGS (13)
  1. CRESTOR [Suspect]
     Active Substance: ROSUVASTATIN CALCIUM
  2. INSULIN NOS [Concomitant]
     Active Substance: INSULIN NOS
  3. SACUBITRIL [Concomitant]
     Active Substance: SACUBITRIL
  4. DOXAZOSIN [Concomitant]
     Active Substance: DOXAZOSIN MESYLATE
  5. DOXAZOSIN [Concomitant]
     Active Substance: DOXAZOSIN MESYLATE
  6. AMLODIPINE [Concomitant]
     Active Substance: AMLODIPINE BESYLATE
  7. AMLODIPINE [Concomitant]
     Active Substance: AMLODIPINE BESYLATE
  8. FUROSEMIDE [Concomitant]
     Active Substance: FUROSEMIDE
  9. FUROSEMIDE [Concomitant]
     Active Substance: FUROSEMIDE
  10. VONOPRAZAN FUMARATE [Concomitant]
     Active Substance: VONOPRAZAN FUMARATE
  11. VONOPRAZAN FUMARATE [Concomitant]
     Active Substance: VONOPRAZAN FUMARATE
  12. INSULIN DEGLUDEC(GENETICAL RECOMBINATION)/INSULIN ASPART(GENETICAL REC [Concomitant]
  13. SACUBITRIL VALSARTAN SODIUM HYDRATE [Concomitant]

REACTIONS (7)
  - Acute myocardial infarction [Unknown]
  - Cardiac failure acute [Recovered/Resolved]
  - Low cardiac output syndrome [Unknown]
  - Presyncope [Recovered/Resolved]
  - Cardiac perforation [Unknown]
  - Cardiogenic shock [Unknown]
  - Back pain [Unknown]
